FAERS Safety Report 15524155 (Version 3)
Quarter: 2019Q2

REPORT INFORMATION
  Report Type: Spontaneous
  Country: US (occurrence: US)
  Receive Date: 20181019
  Receipt Date: 20190528
  Transmission Date: 20190711
  Serious: Yes (Other)
  Sender: FDA-Public Use
  Company Number: US-ASTRAZENECA-2018SF35245

PATIENT
  Age: 29285 Day
  Sex: Male
  Weight: 88.5 kg

DRUGS (46)
  1. LIPITOR [Concomitant]
     Active Substance: ATORVASTATIN CALCIUM
     Indication: BLOOD CHOLESTEROL
  2. NAPROXEN. [Concomitant]
     Active Substance: NAPROXEN
  3. EZETIMIBE. [Concomitant]
     Active Substance: EZETIMIBE
  4. CARBAMAZEPINE. [Concomitant]
     Active Substance: CARBAMAZEPINE
  5. ZETIA [Concomitant]
     Active Substance: EZETIMIBE
  6. CRESTOR [Concomitant]
     Active Substance: ROSUVASTATIN CALCIUM
     Indication: BLOOD CHOLESTEROL
  7. RELION [Concomitant]
  8. COLESTIPOL [Concomitant]
     Active Substance: COLESTIPOL
  9. PROTONIX [Suspect]
     Active Substance: PANTOPRAZOLE SODIUM
     Indication: GASTROOESOPHAGEAL REFLUX DISEASE
     Dosage: 40 MG
     Route: 065
     Dates: start: 20031217, end: 20120103
  10. PRANDIN [Concomitant]
     Active Substance: REPAGLINIDE
  11. GLYBURIDE. [Concomitant]
     Active Substance: GLYBURIDE
  12. NOVOLOG [Concomitant]
     Active Substance: INSULIN ASPART
  13. TERAZOSIN [Concomitant]
     Active Substance: TERAZOSIN\TERAZOSIN HYDROCHLORIDE
  14. FUROSEMIDE. [Concomitant]
     Active Substance: FUROSEMIDE
     Indication: FLUID RETENTION
  15. LOSARTAN. [Concomitant]
     Active Substance: LOSARTAN
     Indication: BLOOD PRESSURE MEASUREMENT
  16. SYNTHROID [Concomitant]
     Active Substance: LEVOTHYROXINE SODIUM
     Route: 048
  17. SULFAMETHOXAZOLE [Concomitant]
     Active Substance: SULFAMETHOXAZOLE
  18. VITAMIN C [Concomitant]
     Active Substance: ASCORBIC ACID
  19. SYNTHROID [Concomitant]
     Active Substance: LEVOTHYROXINE SODIUM
  20. NEXIUM [Suspect]
     Active Substance: ESOMEPRAZOLE MAGNESIUM
     Indication: GASTROOESOPHAGEAL REFLUX DISEASE
     Dosage: 40 MG
     Route: 048
     Dates: start: 2011
  21. PLAVIX [Concomitant]
     Active Substance: CLOPIDOGREL BISULFATE
  22. AUGMENTIN [Concomitant]
     Active Substance: AMOXICILLIN\CLAVULANATE POTASSIUM
  23. CALCITRIOL. [Concomitant]
     Active Substance: CALCITRIOL
  24. ZETIA [Concomitant]
     Active Substance: EZETIMIBE
  25. ATORVASTATIN [Concomitant]
     Active Substance: ATORVASTATIN
  26. ETODOLAC. [Concomitant]
     Active Substance: ETODOLAC
  27. NEXIUM [Suspect]
     Active Substance: ESOMEPRAZOLE MAGNESIUM
     Indication: GASTROOESOPHAGEAL REFLUX DISEASE
     Route: 048
     Dates: start: 20031217, end: 20120103
  28. ALTACE [Concomitant]
     Active Substance: RAMIPRIL
  29. ATENOLOL. [Concomitant]
     Active Substance: ATENOLOL
  30. AMLODIPINE BESYLATE. [Concomitant]
     Active Substance: AMLODIPINE BESYLATE
  31. NIACIN. [Concomitant]
     Active Substance: NIACIN
  32. PRILOSEC [Suspect]
     Active Substance: OMEPRAZOLE MAGNESIUM
     Indication: GASTROOESOPHAGEAL REFLUX DISEASE
     Dosage: 20 MG
     Route: 065
  33. PREVACID [Suspect]
     Active Substance: LANSOPRAZOLE
     Indication: GASTROOESOPHAGEAL REFLUX DISEASE
     Route: 065
     Dates: start: 20031217, end: 20120103
  34. LISINOPRIL. [Concomitant]
     Active Substance: LISINOPRIL
     Indication: BLOOD PRESSURE MEASUREMENT
  35. ZITHROMAX [Concomitant]
     Active Substance: AZITHROMYCIN DIHYDRATE
  36. BYSTOLIC [Concomitant]
     Active Substance: NEBIVOLOL HYDROCHLORIDE
  37. TRAMADOL. [Concomitant]
     Active Substance: TRAMADOL
  38. PRILOSEC [Suspect]
     Active Substance: OMEPRAZOLE MAGNESIUM
     Indication: GASTROOESOPHAGEAL REFLUX DISEASE
     Dosage: 40 MG
     Route: 048
     Dates: start: 2004
  39. PROTONIX [Suspect]
     Active Substance: PANTOPRAZOLE SODIUM
     Indication: GASTROOESOPHAGEAL REFLUX DISEASE
     Dosage: GENERIC, 40 MG
     Route: 065
  40. RABEPRAZOLE [Suspect]
     Active Substance: RABEPRAZOLE
     Indication: GASTROOESOPHAGEAL REFLUX DISEASE
     Route: 065
     Dates: start: 20021216, end: 20031217
  41. CLARITIN [Concomitant]
     Active Substance: LORATADINE
  42. FLUOCINONIDE. [Concomitant]
     Active Substance: FLUOCINONIDE
  43. LEVOTHYROXINE. [Concomitant]
     Active Substance: LEVOTHYROXINE
  44. ASCORBIC ACID. [Concomitant]
     Active Substance: ASCORBIC ACID
  45. NITROSTAT [Concomitant]
     Active Substance: NITROGLYCERIN
  46. ASPIRIN. [Concomitant]
     Active Substance: ASPIRIN

REACTIONS (5)
  - Renal artery stent placement [Not Recovered/Not Resolved]
  - Renal failure [Unknown]
  - Renal disorder [Not Recovered/Not Resolved]
  - Chronic kidney disease [Unknown]
  - Acute kidney injury [Unknown]

NARRATIVE: CASE EVENT DATE: 20060831
